FAERS Safety Report 23426117 (Version 1)
Quarter: 2024Q1

REPORT INFORMATION
  Report Type: Spontaneous
  Country: US (occurrence: US)
  Receive Date: 20240122
  Receipt Date: 20240122
  Transmission Date: 20240410
  Serious: Yes (Hospitalization, Disabling, Other)
  Sender: FDA-Public Use
  Company Number: US-SA-SAC20240119000180

PATIENT
  Age: 55 Year
  Sex: Female
  Weight: 90.31 kg

DRUGS (23)
  1. DUPIXENT [Suspect]
     Active Substance: DUPILUMAB
     Indication: Asthma
     Dosage: 300 MG, QOW
     Route: 058
     Dates: start: 20221215
  2. CALCITONIN SALMON [Concomitant]
     Active Substance: CALCITONIN SALMON
  3. LEVSIN [Concomitant]
     Active Substance: HYOSCYAMINE SULFATE
  4. NITROGLYCERIN [Concomitant]
     Active Substance: NITROGLYCERIN
  5. LUNESTA [Concomitant]
     Active Substance: ESZOPICLONE
  6. TRULANCE [Concomitant]
     Active Substance: PLECANATIDE
  7. VENTOLIN HFA [Concomitant]
     Active Substance: ALBUTEROL SULFATE
  8. TYLENOL ARTHRITIS PAIN [Concomitant]
     Active Substance: ACETAMINOPHEN
  9. ELIQUIS [Concomitant]
     Active Substance: APIXABAN
  10. IPRATROPIUM BROMIDE AND ALBUTEROL SULFATE [Concomitant]
     Active Substance: ALBUTEROL SULFATE\IPRATROPIUM BROMIDE
  11. GABAPENTIN [Concomitant]
     Active Substance: GABAPENTIN
  12. EPINEPHRINE [Concomitant]
     Active Substance: EPINEPHRINE
  13. MELATONIN [Concomitant]
     Active Substance: MELATONIN
  14. ZYRTEC [Concomitant]
     Active Substance: CETIRIZINE HYDROCHLORIDE
  15. DICYCLOMINE [Concomitant]
     Active Substance: DICYCLOMINE HYDROCHLORIDE
  16. PREVACID [Concomitant]
     Active Substance: LANSOPRAZOLE
  17. TRIAMCINOLONE ACETONIDE [Concomitant]
     Active Substance: TRIAMCINOLONE ACETONIDE
  18. FAMOTIDINE [Concomitant]
     Active Substance: FAMOTIDINE
  19. METHOCARBAMOL [Concomitant]
     Active Substance: METHOCARBAMOL
  20. MONTELUKAST [Concomitant]
     Active Substance: MONTELUKAST SODIUM
  21. RESTASIS [Concomitant]
     Active Substance: CYCLOSPORINE
  22. BREZTRI [Concomitant]
     Active Substance: BUDESONIDE\FORMOTEROL\GLYCOPYRROLATE
  23. ALBUTEROL SULFATE [Concomitant]
     Active Substance: ALBUTEROL SULFATE

REACTIONS (5)
  - Spinal fracture [Unknown]
  - Loss of personal independence in daily activities [Unknown]
  - Fall [Unknown]
  - Cough [Unknown]
  - Oxygen saturation decreased [Unknown]

NARRATIVE: CASE EVENT DATE: 20231201
